FAERS Safety Report 4342332-1 (Version None)
Quarter: 2004Q2

REPORT INFORMATION
  Report Type: 
  Country: None (occurrence: None)
  Receive Date: 20040416
  Receipt Date: 20040407
  Transmission Date: 20050107
  Serious: No
  Sender: FDA-Public Use
  Company Number: 2004UW06938

PATIENT

DRUGS (1)
  1. CRESTOR [Suspect]
     Dosage: NI

REACTIONS (1)
  - CONVULSION [None]
